FAERS Safety Report 20472339 (Version 1)
Quarter: 2022Q1

REPORT INFORMATION
  Report Type: Spontaneous
  Country: US (occurrence: US)
  Receive Date: 20220215
  Receipt Date: 20220215
  Transmission Date: 20220424
  Serious: No
  Sender: FDA-Public Use
  Company Number: US-JNJFOC-20220156897

PATIENT
  Age: 56 Year
  Sex: Female
  Weight: 102.15 kg

DRUGS (17)
  1. BENADRYL [Suspect]
     Active Substance: DIPHENHYDRAMINE HYDROCHLORIDE
     Indication: Dermatitis allergic
     Route: 048
     Dates: start: 202002
  2. BENADRYL [Suspect]
     Active Substance: DIPHENHYDRAMINE HYDROCHLORIDE
     Indication: Allergy to arthropod sting
     Route: 065
     Dates: start: 202002
  3. PEPCID [Suspect]
     Active Substance: FAMOTIDINE
     Indication: Dermatitis allergic
     Route: 048
     Dates: start: 20200217, end: 20200224
  4. PEPCID [Suspect]
     Active Substance: FAMOTIDINE
     Indication: Allergy to arthropod sting
  5. NEUTROGENA ULTRA SHEER [Concomitant]
     Active Substance: AVOBENZONE\HOMOSALATE\OCTISALATE\OCTOCRYLENE\OXYBENZONE
     Indication: Prophylaxis against solar radiation
     Dosage: QUARTER SIZE
     Route: 061
     Dates: start: 20200208, end: 20200214
  6. IMITREX [Concomitant]
     Active Substance: SUMATRIPTAN SUCCINATE
     Indication: Migraine
     Dosage: TAKE 1 TABLET BY MOUTH AT ONSET OF MIGRAINE, MAY REPEAT 2 HOURS IF NEEDED
     Route: 048
     Dates: start: 20160106
  7. HYDROCORTISONE [Concomitant]
     Active Substance: HYDROCORTISONE
     Indication: Dermatitis allergic
     Dosage: APPLY 1 APPLICATION
     Route: 061
     Dates: start: 20200217
  8. HYDROCORTISONE [Concomitant]
     Active Substance: HYDROCORTISONE
     Indication: Allergy to arthropod sting
  9. MEDROL [Concomitant]
     Active Substance: METHYLPREDNISOLONE
     Indication: Dermatitis allergic
     Dosage: FOLLOW PACKAGE DIRECTIONS
     Route: 065
     Dates: start: 20200217
  10. MEDROL [Concomitant]
     Active Substance: METHYLPREDNISOLONE
     Indication: Allergy to arthropod sting
  11. TOPICORT [Concomitant]
     Active Substance: DESOXIMETASONE
     Indication: Dermatitis allergic
     Dosage: APPLY THIN LAYER ON THE AFFECTED AREA
     Route: 061
     Dates: start: 20181128
  12. EPINEPHRINE [Concomitant]
     Active Substance: EPINEPHRINE
     Indication: Anaphylactic reaction
     Dosage: INJECT 0.3ML INTO THE MUSCLE
     Route: 030
  13. PROTONIX [Concomitant]
     Active Substance: PANTOPRAZOLE SODIUM
     Indication: Product used for unknown indication
     Route: 065
     Dates: start: 20190507
  14. ALOE VERA LEAF [Concomitant]
     Active Substance: ALOE VERA LEAF
     Indication: Allergy to arthropod sting
     Route: 061
     Dates: start: 202002
  15. PREDNISONE [Concomitant]
     Active Substance: PREDNISONE
     Indication: Product used for unknown indication
     Route: 048
  16. IBUPROFEN [Concomitant]
     Active Substance: IBUPROFEN
     Indication: Product used for unknown indication
     Route: 048
  17. NORCO [Concomitant]
     Active Substance: ACETAMINOPHEN\HYDROCODONE BITARTRATE
     Indication: Pain
     Route: 048

REACTIONS (3)
  - Product use in unapproved indication [Unknown]
  - Off label use [Unknown]
  - Therapeutic response unexpected [Unknown]

NARRATIVE: CASE EVENT DATE: 20200201
